FAERS Safety Report 23742543 (Version 4)
Quarter: 2024Q2

REPORT INFORMATION
  Report Type: Spontaneous
  Country: US (occurrence: US)
  Receive Date: 20240415
  Receipt Date: 20240522
  Transmission Date: 20240716
  Serious: No
  Sender: FDA-Public Use
  Company Number: US-PFIZER INC-202400075767

PATIENT
  Age: 14 Year
  Sex: Male

DRUGS (2)
  1. GENOTROPIN [Suspect]
     Active Substance: SOMATROPIN
     Dosage: 1.8 MONDAY-SATURDAY THEN ON SUNDAY GIVE 1.6
  2. GENOTROPIN [Suspect]
     Active Substance: SOMATROPIN
     Dosage: NEXT TWO WEEKS THEN CAN DO UP TO 1.8 ON SUNDAY AS WELL

REACTIONS (4)
  - Drug dose omission by device [Unknown]
  - Device difficult to use [Unknown]
  - Device mechanical issue [Unknown]
  - Device leakage [Unknown]
